FAERS Safety Report 5507816-9 (Version None)
Quarter: 2007Q4

REPORT INFORMATION
  Report Type: 
  Country: None (occurrence: None)
  Receive Date: 20071030
  Receipt Date: 20070904
  Transmission Date: 20080405
  Serious: Yes (Other)
  Sender: FDA-Public Use
  Company Number: 265855

PATIENT
  Age: 83 Year
  Sex: Female
  Weight: 73.9 kg

DRUGS (14)
  1. LEVEMIR [Suspect]
     Indication: INSULIN-REQUIRING TYPE II DIABETES MELLITUS
     Dosage: 10 U, SINGLE, SUBCUTANEOUS
     Route: 058
     Dates: start: 20070713, end: 20070713
  2. COUMADIN [Concomitant]
  3. CLONIDINE [Concomitant]
  4. ARICEPT [Concomitant]
  5. POTASSIUM (POTASSIUM) [Concomitant]
  6. AMARYL [Concomitant]
  7. HYDROCHLOROTHIAZIDE [Concomitant]
  8. COREG [Concomitant]
  9. ACTOS [Concomitant]
  10. LASIX [Concomitant]
  11. LISINOPRIL [Concomitant]
  12. METIMAZOL (THIAMAZOLE) [Concomitant]
  13. NORVASC [Concomitant]
  14. SPIRONOLACTONE [Concomitant]

REACTIONS (1)
  - HYPERSENSITIVITY [None]
